FAERS Safety Report 21124374 (Version 1)
Quarter: 2022Q3

REPORT INFORMATION
  Report Type: Spontaneous
  Country: IN (occurrence: IN)
  Receive Date: 20220725
  Receipt Date: 20220725
  Transmission Date: 20221027
  Serious: Yes (Other)
  Sender: FDA-Public Use
  Company Number: IN-Shilpa Medicare Limited-SML-IN-2022-00815

PATIENT
  Sex: Male

DRUGS (13)
  1. IRINOTECAN [Suspect]
     Active Substance: IRINOTECAN
     Indication: Spindle cell sarcoma
  2. DOCETAXEL [Suspect]
     Active Substance: DOCETAXEL
     Indication: Spindle cell sarcoma
  3. IMATINIB [Suspect]
     Active Substance: IMATINIB
     Indication: Spindle cell sarcoma
  4. LENVATINIB [Suspect]
     Active Substance: LENVATINIB
     Indication: Spindle cell sarcoma
  5. GEMCITABINE [Suspect]
     Active Substance: GEMCITABINE
     Indication: Spindle cell sarcoma
  6. BEVACIZUMAB [Suspect]
     Active Substance: BEVACIZUMAB
     Indication: Spindle cell sarcoma
  7. CYCLOSPORINE [Suspect]
     Active Substance: CYCLOSPORINE
     Indication: Spindle cell sarcoma
  8. IFOSFAMIDE [Suspect]
     Active Substance: IFOSFAMIDE
     Indication: Spindle cell sarcoma
  9. METHOTREXATE [Suspect]
     Active Substance: METHOTREXATE
     Indication: Spindle cell sarcoma
  10. PALBOCICLIB [Suspect]
     Active Substance: PALBOCICLIB
     Indication: Spindle cell sarcoma
  11. PREDNISOLONE [Suspect]
     Active Substance: PREDNISOLONE
     Indication: Spindle cell sarcoma
  12. DOXORUBICIN [Suspect]
     Active Substance: DOXORUBICIN
     Indication: Spindle cell sarcoma
  13. ADRIAMYCIN [Suspect]
     Active Substance: DOXORUBICIN HYDROCHLORIDE
     Indication: Spindle cell sarcoma

REACTIONS (7)
  - Treatment failure [Unknown]
  - Disease progression [Unknown]
  - Weight decreased [Unknown]
  - Dyspnoea [Unknown]
  - Pneumothorax [Unknown]
  - Multiple-drug resistance [Unknown]
  - Locomotive syndrome [Unknown]
